FAERS Safety Report 15811856 (Version 1)
Quarter: 2019Q1

REPORT INFORMATION
  Report Type: Spontaneous
  Country: JP (occurrence: JP)
  Receive Date: 20190111
  Receipt Date: 20190111
  Transmission Date: 20190417
  Serious: Yes (Other)
  Sender: FDA-Public Use
  Company Number: PHHY2019JP004301

PATIENT
  Age: 92 Year
  Weight: 37 kg

DRUGS (1)
  1. RIVASTACH [Suspect]
     Active Substance: RIVASTIGMINE
     Indication: DEMENTIA ALZHEIMER^S TYPE
     Dosage: 0.95 MG, QD (A HALF DOSE OF 4.5 MG PATCH, 2.25 MG) (PATCH 2.5 (CM2), 4.5 MG RIVASTIGMINE BASE))
     Route: 062
     Dates: start: 201812

REACTIONS (3)
  - Hallucination, visual [Unknown]
  - Wrong technique in product usage process [Unknown]
  - Delirium [Unknown]

NARRATIVE: CASE EVENT DATE: 2018
